FAERS Safety Report 4295279-3 (Version None)
Quarter: 2004Q1

REPORT INFORMATION
  Report Type: 
  Country: None (occurrence: None)
  Receive Date: 20040216
  Receipt Date: 20030512
  Transmission Date: 20041129
  Serious: No
  Sender: FDA-Public Use
  Company Number: US-GLAXOSMITHKLINE-A0408089A

PATIENT
  Age: 42 Year
  Sex: Female

DRUGS (5)
  1. LAMICTAL [Suspect]
     Dosage: 500MG PER DAY
     Route: 048
  2. KEPPRA [Concomitant]
     Dosage: 1500MG TWICE PER DAY
     Route: 065
  3. KLONOPIN [Concomitant]
     Dosage: .5MG TWICE PER DAY
     Route: 065
  4. ATIVAN [Concomitant]
     Dosage: 1MG AT NIGHT
     Route: 065
  5. VITAMIN CAP [Concomitant]

REACTIONS (1)
  - VISUAL DISTURBANCE [None]
